FAERS Safety Report 8119823-0 (Version None)
Quarter: 2012Q1

REPORT INFORMATION
  Report Type: 
  Country: None (occurrence: None)
  Receive Date: 20120207
  Receipt Date: 20120131
  Transmission Date: 20120608
  Serious: Yes (Other)
  Sender: FDA-Public Use
  Company Number: US-US-EMD SERONO, INC.-7107975

PATIENT
  Sex: Female
  Weight: 94 kg

DRUGS (6)
  1. PREDNISONE TAB [Concomitant]
     Indication: DISEASE PROGRESSION
     Route: 048
     Dates: start: 20110401, end: 20110413
  2. MYCOPHENOLATE MOFETIL (CELLCEPT) [Suspect]
     Dates: start: 20110801, end: 20111001
  3. MYCOPHENOLATE MOFETIL (CELLCEPT) [Suspect]
     Indication: MULTIPLE SCLEROSIS
     Route: 048
     Dates: start: 20110331, end: 20110701
  4. REBIF [Suspect]
     Indication: MULTIPLE SCLEROSIS
     Dates: start: 20110428, end: 20110701
  5. REBIF [Suspect]
     Dates: start: 20110801, end: 20111001
  6. ACETAMINOPHEN [Concomitant]
     Indication: PAIN
     Route: 048
     Dates: start: 20110214

REACTIONS (2)
  - ABORTION SPONTANEOUS [None]
  - FOETAL EXPOSURE DURING PREGNANCY [None]
